FAERS Safety Report 12711156 (Version 2)
Quarter: 2016Q3

REPORT INFORMATION
  Report Type: Spontaneous
  Country: CO (occurrence: CO)
  Receive Date: 20160902
  Receipt Date: 20160919
  Transmission Date: 20161109
  Serious: Yes (Other)
  Sender: FDA-Public Use
  Company Number: PHHY2016CO119050

PATIENT
  Sex: Female

DRUGS (1)
  1. LEUPRORELIN [Suspect]
     Active Substance: LEUPROLIDE ACETATE
     Indication: PRECOCIOUS PUBERTY
     Dosage: 11.25 MG, EVERY 84 DAYS
     Route: 030

REACTIONS (8)
  - Dizziness [Unknown]
  - Asthenia [Unknown]
  - Dyskinesia [Unknown]
  - Polyuria [Unknown]
  - Discomfort [Unknown]
  - Headache [Unknown]
  - Tremor [Unknown]
  - Pain [Unknown]
